FAERS Safety Report 6239225-1 (Version None)
Quarter: 2009Q2

REPORT INFORMATION
  Report Type: 
  Country: None (occurrence: None)
  Receive Date: 20090622
  Receipt Date: 20090618
  Transmission Date: 20091009
  Serious: Yes (Other)
  Sender: FDA-Public Use
  Company Number: CA-BRISTOL-MYERS SQUIBB COMPANY-14670848

PATIENT

DRUGS (1)
  1. CYTOXAN [Suspect]

REACTIONS (1)
  - TUMOUR LYSIS SYNDROME [None]
